FAERS Safety Report 7349474-7 (Version None)
Quarter: 2011Q1

REPORT INFORMATION
  Report Type: 
  Country: None (occurrence: None)
  Receive Date: 20110314
  Receipt Date: 20110127
  Transmission Date: 20110831
  Serious: No
  Sender: FDA-Public Use
  Company Number: US-ABBOTT-11P-163-0701156-00

PATIENT
  Age: 58 Year
  Sex: Female

DRUGS (1)
  1. DEPAKOTE [Suspect]
     Indication: PRODUCT USED FOR UNKNOWN INDICATION

REACTIONS (2)
  - NAUSEA [None]
  - MENTAL DISORDER [None]
